FAERS Safety Report 21858016 (Version 2)
Quarter: 2023Q2

REPORT INFORMATION
  Report Type: Report from Study
  Country: US (occurrence: US)
  Receive Date: 20230113
  Receipt Date: 20230531
  Transmission Date: 20230721
  Serious: Yes (Other)
  Sender: FDA-Public Use
  Company Number: US-ABBVIE-4268593

PATIENT
  Age: 68 Year
  Sex: Female

DRUGS (1)
  1. IMBRUVICA [Suspect]
     Active Substance: IBRUTINIB
     Indication: Waldenstrom^s macroglobulinaemia
     Route: 048
     Dates: start: 20160101

REACTIONS (9)
  - Syncope [Unknown]
  - Contusion [Not Recovered/Not Resolved]
  - Cardiac flutter [Unknown]
  - Wound haemorrhage [Unknown]
  - Cerebral disorder [Unknown]
  - Mood swings [Unknown]
  - Skin fissures [Not Recovered/Not Resolved]
  - Loss of personal independence in daily activities [Unknown]
  - Adverse drug reaction [Unknown]

NARRATIVE: CASE EVENT DATE: 20221012
